FAERS Safety Report 19881762 (Version 1)
Quarter: 2021Q3

REPORT INFORMATION
  Report Type: Report from Study
  Country: IT (occurrence: IT)
  Receive Date: 20210924
  Receipt Date: 20210924
  Transmission Date: 20211014
  Serious: Yes (Death)
  Sender: FDA-Public Use
  Company Number: IT-CELGENEUS-ITA-20210906584

PATIENT
  Age: 88 Year
  Sex: Male
  Weight: 75 kg

DRUGS (3)
  1. SEQUACOR [Concomitant]
     Active Substance: BISOPROLOL
     Indication: HYPERTENSION
     Dosage: 250 MILLIGRAM
     Route: 065
  2. LUSPATERCEPT. [Suspect]
     Active Substance: LUSPATERCEPT
     Indication: ANAEMIA OF MALIGNANT DISEASE
     Route: 065
  3. EXJADE [Concomitant]
     Active Substance: DEFERASIROX
     Indication: HYPERFERRITINAEMIA
     Route: 065
     Dates: start: 20191126

REACTIONS (1)
  - Death [Fatal]
